FAERS Safety Report 7139474-4 (Version None)
Quarter: 2010Q4

REPORT INFORMATION
  Report Type: 
  Country: None (occurrence: None)
  Receive Date: 20101206
  Receipt Date: 20101125
  Transmission Date: 20110411
  Serious: Yes (Other)
  Sender: FDA-Public Use
  Company Number: CA-PFIZER INC-2010158389

PATIENT
  Age: 36 Year
  Sex: Male

DRUGS (1)
  1. EFFEXOR XR [Suspect]
     Dosage: UNK
     Dates: end: 20060101

REACTIONS (1)
  - PAIN [None]
